FAERS Safety Report 26123439 (Version 1)
Quarter: 2025Q4

REPORT INFORMATION
  Report Type: Spontaneous
  Country: KR (occurrence: KR)
  Receive Date: 20251204
  Receipt Date: 20251204
  Transmission Date: 20260117
  Serious: Yes (Other)
  Sender: AZURITY PHARMACEUTICALS
  Company Number: KR-AZURITY PHARMACEUTICALS, INC.-AZR202511-003619

PATIENT
  Age: 46 Year
  Sex: Female

DRUGS (1)
  1. NIMODIPINE [Suspect]
     Active Substance: NIMODIPINE
     Indication: Vasospasm
     Dosage: UNK
     Route: 013

REACTIONS (2)
  - Brain oedema [Unknown]
  - Product use in unapproved indication [Unknown]
